FAERS Safety Report 17272703 (Version 1)
Quarter: 2020Q1

REPORT INFORMATION
  Report Type: Spontaneous
  Country: US (occurrence: US)
  Receive Date: 20200115
  Receipt Date: 20200115
  Transmission Date: 20200409
  Serious: No
  Sender: FDA-Public Use
  Company Number: US-PFIZER INC-2020015026

PATIENT
  Age: 65 Year
  Sex: Female
  Weight: 86 kg

DRUGS (1)
  1. PREGABALIN. [Suspect]
     Active Substance: PREGABALIN
     Indication: NEUROPATHY PERIPHERAL
     Dosage: 300 MG, 2X/DAY
     Route: 048
     Dates: end: 20200109

REACTIONS (6)
  - Feeling jittery [Recovering/Resolving]
  - Nervousness [Unknown]
  - Drug ineffective [Unknown]
  - Vision blurred [Recovering/Resolving]
  - Tremor [Recovering/Resolving]
  - Diplopia [Unknown]
